FAERS Safety Report 9532485 (Version 1)
Quarter: 2013Q3

REPORT INFORMATION
  Report Type: Spontaneous
  Country: US (occurrence: None)
  Receive Date: 20130916
  Receipt Date: 20130916
  Transmission Date: 20140515
  Serious: Yes (Hospitalization)
  Sender: FDA-Public Use
  Company Number: ACO_38412_2013

PATIENT
  Sex: Female
  Weight: 102 kg

DRUGS (2)
  1. AMPYRA [Suspect]
     Indication: GAIT DISTURBANCE
     Dosage: UNK, BID, ORAL
     Route: 048
     Dates: end: 2013
  2. AMPYRA [Suspect]
     Indication: MULTIPLE SCLEROSIS
     Dosage: UNK, BID, ORAL
     Route: 048
     Dates: end: 2013

REACTIONS (3)
  - Convulsion [None]
  - Treatment noncompliance [None]
  - Medication error [None]
